FAERS Safety Report 8045694-7 (Version None)
Quarter: 2012Q1

REPORT INFORMATION
  Report Type: 
  Country: None (occurrence: None)
  Receive Date: 20120113
  Receipt Date: 20120106
  Transmission Date: 20120608
  Serious: Yes (Hospitalization, Other)
  Sender: FDA-Public Use
  Company Number: BR-SANOFI-AVENTIS-2012SA001385

PATIENT
  Age: 79 Year
  Sex: Female
  Weight: 57 kg

DRUGS (15)
  1. APIDRA SOLOSTAR [Suspect]
     Indication: TYPE 2 DIABETES MELLITUS
     Dosage: APIDRA USE SINCE 6 YEARS AGO. 12 IU IN FASTING AND 12 IU BEFORE LUNCH
     Route: 058
     Dates: start: 20060101
  2. METFORMIN HCL [Concomitant]
     Indication: TYPE 2 DIABETES MELLITUS
     Dates: start: 20070101
  3. SOLOSTAR [Suspect]
     Indication: DEVICE THERAPY
     Dates: start: 20060101
  4. INSULIN DETEMIR [Concomitant]
     Indication: TYPE 2 DIABETES MELLITUS
     Dates: start: 20110101
  5. CARVEDILOL [Concomitant]
     Indication: BLOOD PRESSURE
     Dates: start: 20110101
  6. LOSARTAN POTASSIUM [Concomitant]
     Dates: start: 20110101
  7. ISORDIL [Concomitant]
     Dates: start: 20110101
  8. VYTORIN [Concomitant]
     Dates: start: 20110101
  9. CLONIDINE HYDROCHLORIDE [Concomitant]
     Indication: BLOOD PRESSURE
     Dates: start: 20110101
  10. ASPIRIN [Concomitant]
     Dates: start: 20070101
  11. ISOSORBIDE MONONITRATE [Concomitant]
  12. ISORDIL [Concomitant]
     Indication: PAIN
     Dates: start: 20110101
  13. HYGROTON [Concomitant]
     Dates: start: 20110101
  14. LEVOTHYROXINE SODIUM [Concomitant]
     Indication: THYROID DISORDER
     Dates: start: 20110101
  15. SIMETHICONE [Concomitant]
     Dates: start: 20110101

REACTIONS (4)
  - ARTERIAL OCCLUSIVE DISEASE [None]
  - DEMENTIA ALZHEIMER'S TYPE [None]
  - DYSPNOEA [None]
  - PARKINSON'S DISEASE [None]
